FAERS Safety Report 4725233-6 (Version None)
Quarter: 2005Q3

REPORT INFORMATION
  Report Type: 
  Country: None (occurrence: None)
  Receive Date: 20050725
  Receipt Date: 20050711
  Transmission Date: 20060218
  Serious: Yes (Life-Threatening, Hospitalization, Other)
  Sender: FDA-Public Use
  Company Number: 2005099827

PATIENT
  Sex: Male
  Weight: 136.0791 kg

DRUGS (3)
  1. BENADRYL [Suspect]
     Dosage: AS NECESSARY INTRAVENOUS
     Route: 042
  2. INFLIXIMAB (INFLIXIMAB) [Suspect]
     Indication: ILL-DEFINED DISORDER
     Dosage: INTRAVENOUS
     Route: 042
  3. TYLENOL [Concomitant]

REACTIONS (1)
  - CARDIO-RESPIRATORY ARREST [None]
